FAERS Safety Report 11232740 (Version 1)
Quarter: 2015Q3

REPORT INFORMATION
  Report Type: Spontaneous
  Country: US (occurrence: US)
  Receive Date: 20150701
  Receipt Date: 20150701
  Transmission Date: 20151125
  Serious: Yes (Other)
  Sender: FDA-Public Use
  Company Number: US-PACK PHARMACEUTICALS, LLC-2015RIS00093

PATIENT
  Age: 67 Year
  Sex: Male
  Weight: 68.93 kg

DRUGS (6)
  1. CENTRUM MULTI-VITAMIN [Concomitant]
     Dosage: UNK
  2. VITAMIN D [Concomitant]
     Active Substance: CHOLECALCIFEROL
     Dosage: UNK
  3. LOSARTAN POTASSIUM TABLETS USP 25 MG [Suspect]
     Active Substance: LOSARTAN POTASSIUM
     Indication: HYPERTENSION
     Dosage: 25 MG, 1X/DAY
     Route: 048
     Dates: start: 20140412
  4. TOPROL XL [Suspect]
     Active Substance: METOPROLOL SUCCINATE
     Dosage: 12.5 MG, UNK
  5. MAGNESIUM [Concomitant]
     Active Substance: MAGNESIUM
     Dosage: UNK
  6. TOPROL XL [Suspect]
     Active Substance: METOPROLOL SUCCINATE
     Dosage: 25 MG, UNK

REACTIONS (8)
  - Cardiac flutter [Recovering/Resolving]
  - Musculoskeletal stiffness [Recovering/Resolving]
  - Blood pressure decreased [Recovered/Resolved]
  - Arrhythmia [Recovering/Resolving]
  - Ventricular extrasystoles [Recovering/Resolving]
  - Headache [Recovering/Resolving]
  - Product quality issue [None]
  - Drug ineffective [Recovering/Resolving]

NARRATIVE: CASE EVENT DATE: 201504
